FAERS Safety Report 22193028 (Version 1)
Quarter: 2023Q2

REPORT INFORMATION
  Report Type: Spontaneous
  Country: US (occurrence: US)
  Receive Date: 20230410
  Receipt Date: 20230410
  Transmission Date: 20230722
  Serious: No
  Sender: FDA-Public Use
  Company Number: US-THEA-2023000063

PATIENT
  Sex: Female

DRUGS (1)
  1. ZIOPTAN [Suspect]
     Active Substance: TAFLUPROST
     Indication: Ocular discomfort
     Dosage: AT BEDTIME
     Route: 047

REACTIONS (3)
  - Product closure removal difficult [Unknown]
  - Product dose omission issue [Unknown]
  - Product quality issue [Unknown]
